FAERS Safety Report 18488396 (Version 8)
Quarter: 2022Q3

REPORT INFORMATION
  Report Type: Other
  Country: CN (occurrence: None)
  Receive Date: 20201111
  Receipt Date: 20220829
  Transmission Date: 20221027
  Serious: Yes (Other)
  Sender: FDA-Public Use
  Company Number: CN-ROCHE-1876718

PATIENT
  Age: 50 Year
  Sex: Male
  Weight: 78 kg

DRUGS (4)
  1. AVASTIN [Suspect]
     Active Substance: BEVACIZUMAB
     Indication: Rectal cancer metastatic
     Dosage: FORM OF ADMIN: INJECTION
     Route: 041
     Dates: start: 20160527
  2. AVASTIN [Suspect]
     Active Substance: BEVACIZUMAB
     Dosage: FORM OF ADMIN: INJECTION
     Route: 041
     Dates: start: 20161227, end: 20201103
  3. AVASTIN [Suspect]
     Active Substance: BEVACIZUMAB
     Dosage: FORM OF ADMIN: INJECTION
     Route: 041
     Dates: end: 20220804
  4. AVASTIN [Suspect]
     Active Substance: BEVACIZUMAB
     Dosage: FORM OF ADMIN: INJECTION
     Route: 041

REACTIONS (8)
  - Hepatic mass [Unknown]
  - Hypoaesthesia [Unknown]
  - Protein urine present [Unknown]
  - Hepatic mass [Unknown]
  - Protein urine present [Unknown]
  - Nasopharyngitis [Unknown]
  - Pyrexia [Unknown]
  - Diarrhoea [Unknown]

NARRATIVE: CASE EVENT DATE: 20200106
